FAERS Safety Report 17696313 (Version 2)
Quarter: 2021Q3

REPORT INFORMATION
  Report Type: Spontaneous
  Country: US (occurrence: US)
  Receive Date: 20200423
  Receipt Date: 20210817
  Transmission Date: 20211014
  Serious: Yes (Other)
  Sender: FDA-Public Use
  Company Number: US-ASTRAZENECA-2020SE50989

PATIENT
  Sex: Female

DRUGS (6)
  1. BYDUREON BCISE [Suspect]
     Active Substance: EXENATIDE
     Indication: DIABETES MELLITUS
     Dosage: 2.0MG UNKNOWN
     Route: 065
  2. NOVOLIN NOS [Suspect]
     Active Substance: INSULIN HUMAN
     Route: 065
  3. NOVOLIN NOS [Suspect]
     Active Substance: INSULIN HUMAN
     Route: 065
  4. LEVEMIR [Suspect]
     Active Substance: INSULIN DETEMIR
     Route: 065
  5. GLUMETZA [Suspect]
     Active Substance: METFORMIN HYDROCHLORIDE
     Route: 065
  6. BYDUREON [Suspect]
     Active Substance: EXENATIDE
     Dosage: UNKNOWN
     Route: 065

REACTIONS (8)
  - Blood pressure increased [Unknown]
  - Weight decreased [Unknown]
  - Red blood cell count increased [Unknown]
  - Lymphoedema [Not Recovered/Not Resolved]
  - Acne [Unknown]
  - Insomnia [Unknown]
  - Basal cell carcinoma [Not Recovered/Not Resolved]
  - Glycosylated haemoglobin increased [Unknown]
